FAERS Safety Report 11932143 (Version 2)
Quarter: 2016Q1

REPORT INFORMATION
  Report Type: Spontaneous
  Country: US (occurrence: US)
  Receive Date: 20160120
  Receipt Date: 20160128
  Transmission Date: 20160526
  Serious: No
  Sender: FDA-Public Use
  Company Number: GXBR2015US002409

PATIENT
  Age: 65 Year
  Sex: Male

DRUGS (1)
  1. METFORMIN HCL TABLETS [Suspect]
     Active Substance: METFORMIN HYDROCHLORIDE
     Indication: DIABETES MELLITUS
     Dosage: UNK DF, ONCE/SINGLE
     Route: 048

REACTIONS (2)
  - Pruritus [Recovered/Resolved]
  - Swelling face [Recovered/Resolved]
